FAERS Safety Report 8608950-7 (Version None)
Quarter: 2012Q3

REPORT INFORMATION
  Report Type: 
  Country: None (occurrence: None)
  Receive Date: 20120821
  Receipt Date: 20120815
  Transmission Date: 20120928
  Serious: Yes (Other)
  Sender: FDA-Public Use
  Company Number: US-PFIZER INC-2012200303

PATIENT
  Age: 44 Year
  Sex: Male
  Weight: 63.492 kg

DRUGS (8)
  1. CHANTIX [Suspect]
     Dosage: 0.5 MG, 2X/DAY
     Route: 048
  2. METHYL SALICYLATE [Concomitant]
     Indication: MUSCLE RELAXANT THERAPY
     Dosage: UNK
  3. CHANTIX [Suspect]
     Indication: SMOKING CESSATION THERAPY
     Dosage: 0.5 MG, 1X/DAY
     Route: 048
     Dates: start: 20120728
  4. PERCOCET [Concomitant]
     Indication: PAIN
     Dosage: UNK
  5. NEURONTIN [Suspect]
     Indication: NEURALGIA
     Dosage: 300 MG, 3X/DAY
     Route: 048
     Dates: start: 20080801, end: 20080101
  6. NEURONTIN [Suspect]
     Dosage: 600 MG, 3X/DAY
     Route: 048
     Dates: start: 20080101
  7. FENTANYL [Concomitant]
     Indication: NEURALGIA
     Dosage: UNK
  8. CHANTIX [Suspect]
     Dosage: 1 MG, 2X/DAY
     Route: 048

REACTIONS (4)
  - ABNORMAL BEHAVIOUR [None]
  - INSOMNIA [None]
  - RASH [None]
  - FEELING ABNORMAL [None]
